FAERS Safety Report 13902134 (Version 1)
Quarter: 2017Q3

REPORT INFORMATION
  Report Type: Spontaneous
  Country: US (occurrence: US)
  Receive Date: 20170824
  Receipt Date: 20170824
  Transmission Date: 20171127
  Serious: No
  Sender: FDA-Public Use
  Company Number: US-ROCHE-1130249

PATIENT
  Age: 51 Year
  Sex: Female
  Weight: 88.53 kg

DRUGS (3)
  1. TAXOTERE [Concomitant]
     Active Substance: DOCETAXEL
  2. HERCEPTIN [Suspect]
     Active Substance: TRASTUZUMAB
     Indication: BREAST CANCER METASTATIC
     Route: 065
     Dates: start: 20000630
  3. TAXOL [Concomitant]
     Active Substance: PACLITAXEL
     Route: 065

REACTIONS (8)
  - Tachycardia [Unknown]
  - Abdominal pain upper [Unknown]
  - Dyspnoea [Unknown]
  - Abdominal pain [Unknown]
  - Hypersensitivity [Unknown]
  - Alopecia [Unknown]
  - Disease progression [Unknown]
  - Syncope [Unknown]

NARRATIVE: CASE EVENT DATE: 20000704
